FAERS Safety Report 10044945 (Version 2)
Quarter: 2014Q2

REPORT INFORMATION
  Report Type: Spontaneous
  Country: US (occurrence: US)
  Receive Date: 20140328
  Receipt Date: 20140523
  Transmission Date: 20141212
  Serious: Yes (Other)
  Sender: FDA-Public Use
  Company Number: US-BAYER-2014-047071

PATIENT
  Age: 21 Year
  Sex: Female
  Weight: 36.28 kg

DRUGS (2)
  1. MIRENA [Suspect]
     Indication: CONTRACEPTION
     Dosage: 20 MCG/24HR, CONT
     Route: 015
     Dates: start: 20080819, end: 20120313
  2. MIRENA [Suspect]
     Indication: MENORRHAGIA

REACTIONS (14)
  - Uterine perforation [None]
  - Abdominal pain [None]
  - Pelvic pain [None]
  - Injury [None]
  - Pain [None]
  - Emotional distress [None]
  - Medical device discomfort [None]
  - Genital haemorrhage [None]
  - Internal injury [None]
  - Depression [None]
  - Anxiety [None]
  - Fear [None]
  - Device issue [None]
  - Menorrhagia [None]
